FAERS Safety Report 17535267 (Version 1)
Quarter: 2020Q1

REPORT INFORMATION
  Report Type: Spontaneous
  Country: TN (occurrence: TN)
  Receive Date: 20200312
  Receipt Date: 20200312
  Transmission Date: 20200409
  Serious: Yes (Death)
  Sender: FDA-Public Use
  Company Number: TN-009507513-2003TUN001367

PATIENT
  Age: 37 Year
  Sex: Female

DRUGS (3)
  1. TEICOPLANIN [Suspect]
     Active Substance: TEICOPLANIN
     Indication: PERITONITIS
     Dosage: 400 MICROGRAM
  2. IMIPENEM AND CILASTATIN [Suspect]
     Active Substance: CILASTATIN SODIUM\IMIPENEM
     Indication: PERITONITIS
     Dosage: 1 GRAM
  3. AMIKACIN. [Suspect]
     Active Substance: AMIKACIN
     Indication: PERITONITIS
     Dosage: 20 MILLIGRAM/KILOGRAM

REACTIONS (1)
  - Drug ineffective [Fatal]
